FAERS Safety Report 6845092-5 (Version None)
Quarter: 2010Q3

REPORT INFORMATION
  Report Type: 
  Country: None (occurrence: None)
  Receive Date: 20100715
  Receipt Date: 20070812
  Transmission Date: 20110219
  Serious: No
  Sender: FDA-Public Use
  Company Number: US-PFIZER INC-2007067739

PATIENT
  Sex: Female
  Weight: 52.2 kg

DRUGS (2)
  1. CHANTIX [Suspect]
     Indication: SMOKING CESSATION THERAPY
     Dates: start: 20070804
  2. ACETYLSALICYLIC ACID [Concomitant]

REACTIONS (4)
  - FEELING COLD [None]
  - HOT FLUSH [None]
  - HYPERHIDROSIS [None]
  - TOBACCO WITHDRAWAL SYMPTOMS [None]
